FAERS Safety Report 25879074 (Version 6)
Quarter: 2025Q4

REPORT INFORMATION
  Report Type: Spontaneous
  Country: US (occurrence: US)
  Receive Date: 20251003
  Receipt Date: 20251229
  Transmission Date: 20260118
  Serious: Yes (Other)
  Sender: TRAVERE THERAPEUTICS
  Company Number: US-TRAVERE-2025TVT01680

PATIENT
  Age: 72 Year
  Sex: Male

DRUGS (5)
  1. FILSPARI [Suspect]
     Active Substance: SPARSENTAN
     Indication: IgA nephropathy
     Route: 048
     Dates: start: 202509
  2. FILSPARI [Suspect]
     Active Substance: SPARSENTAN
     Route: 048
  3. ALDACTONE [Suspect]
     Active Substance: SPIRONOLACTONE
     Indication: Product used for unknown indication
  4. NIFEDIPINE [Concomitant]
     Active Substance: NIFEDIPINE
  5. COREG [Concomitant]
     Active Substance: CARVEDILOL

REACTIONS (6)
  - Hypotension [Recovering/Resolving]
  - Road traffic accident [Unknown]
  - Dizziness [Unknown]
  - Asthenia [Unknown]
  - Blood potassium increased [Unknown]
  - Product administration error [Unknown]

NARRATIVE: CASE EVENT DATE: 20250901
